FAERS Safety Report 8605950-8 (Version None)
Quarter: 2012Q3

REPORT INFORMATION
  Report Type: 
  Country: None (occurrence: None)
  Receive Date: 20120820
  Receipt Date: 20120808
  Transmission Date: 20120928
  Serious: Yes (Congenital Anomaly, Other)
  Sender: FDA-Public Use
  Company Number: US-ABBOTT-12P-163-0965990-00

PATIENT

DRUGS (1)
  1. DEPAKOTE [Suspect]
     Indication: MATERNAL EXPOSURE TIMING UNSPECIFIED
     Route: 064

REACTIONS (10)
  - BLINDNESS CONGENITAL [None]
  - PAIN [None]
  - IMPAIRED WORK ABILITY [None]
  - PHYSICAL DISABILITY [None]
  - CONVULSION [None]
  - FOETAL EXPOSURE DURING PREGNANCY [None]
  - SPEECH DISORDER [None]
  - EMOTIONAL DISTRESS [None]
  - UNEVALUABLE EVENT [None]
  - MULTIPLE INJURIES [None]
